FAERS Safety Report 18042194 (Version 6)
Quarter: 2022Q1

REPORT INFORMATION
  Report Type: Spontaneous
  Country: PL (occurrence: PL)
  Receive Date: 20200720
  Receipt Date: 20220203
  Transmission Date: 20220423
  Serious: Yes (Death, Life-Threatening, Hospitalization, Other)
  Sender: FDA-Public Use
  Company Number: PL-VELOXIS PHARMACEUTICALS-2020VELPL-000306

PATIENT
  Age: 61 Year
  Sex: Female

DRUGS (22)
  1. BORTEZOMIB [Suspect]
     Active Substance: BORTEZOMIB
     Indication: Plasma cell myeloma
     Dosage: UNK, CYCLICAL (10 CYCLES)
     Route: 065
  2. MELPHALAN [Suspect]
     Active Substance: MELPHALAN
     Indication: Bone marrow conditioning regimen
     Dosage: 200 MILLIGRAM (CONDITIONING REGIMEN CONSISTED OF MELPHALAN)
     Route: 065
  3. MELPHALAN [Suspect]
     Active Substance: MELPHALAN
     Indication: Plasma cell myeloma
     Dosage: 350 MILLIGRAM,TOTAL DOSE
     Route: 065
  4. MELPHALAN [Suspect]
     Active Substance: MELPHALAN
     Indication: Graft versus host disease
  5. MYCOPHENOLATE MOFETIL [Suspect]
     Active Substance: MYCOPHENOLATE MOFETIL
     Indication: Graft versus host disease
     Dosage: UNK (+100 FOLLOWING ASCT)
     Route: 065
  6. MYCOPHENOLATE MOFETIL [Suspect]
     Active Substance: MYCOPHENOLATE MOFETIL
     Indication: Immunosuppressant drug therapy
  7. CYCLOPHOSPHAMIDE [Suspect]
     Active Substance: CYCLOPHOSPHAMIDE
     Indication: Plasma cell myeloma
     Dosage: UNK
     Route: 065
  8. CYCLOPHOSPHAMIDE [Suspect]
     Active Substance: CYCLOPHOSPHAMIDE
     Indication: Plasma cell myeloma
     Dosage: UNK, CYCLICAL ( 2 CYCLES)OF TREATMENT
     Route: 065
  9. CYCLOPHOSPHAMIDE [Suspect]
     Active Substance: CYCLOPHOSPHAMIDE
     Dosage: UNK UNK, CYCLICAL
     Route: 065
  10. DEXAMETHASONE [Suspect]
     Active Substance: DEXAMETHASONE
     Indication: Plasma cell myeloma
     Dosage: UNK 10 CYCLESOF TREATMENT
     Route: 065
  11. DEXAMETHASONE [Suspect]
     Active Substance: DEXAMETHASONE
     Dosage: UNK,2 CYCLESOF TREATMENT
     Route: 065
  12. ENVARSUS XR [Suspect]
     Active Substance: TACROLIMUS
     Indication: Graft versus host disease
     Dosage: UNK (+100 FOLLOWING ASCT)
     Route: 065
  13. GANCICLOVIR [Suspect]
     Active Substance: GANCICLOVIR
     Indication: Cytomegalovirus infection reactivation
     Dosage: UNK
     Route: 065
  14. GANCICLOVIR [Suspect]
     Active Substance: GANCICLOVIR
     Indication: Cytomegalovirus infection
  15. METHYLPREDNISOLONE [Suspect]
     Active Substance: METHYLPREDNISOLONE
     Indication: Graft versus host disease
     Dosage: UNK(+100 FOLLOWING ASCT)
     Route: 065
  16. METHYLPREDNISOLONE [Suspect]
     Active Substance: METHYLPREDNISOLONE
     Indication: Immunosuppressant drug therapy
  17. THALIDOMIDE [Suspect]
     Active Substance: THALIDOMIDE
     Indication: Plasma cell myeloma
     Dosage: UNK, CYCLICAL (10 CYCLES)
     Route: 065
  18. THALIDOMIDE [Suspect]
     Active Substance: THALIDOMIDE
     Dosage: UNK, CYCLICAL (20 CYCLES)
     Route: 065
  19. THALIDOMIDE [Suspect]
     Active Substance: THALIDOMIDE
     Dosage: UNK, CYCLICAL (2 CYCLES)OF TREATMENT
     Route: 065
  20. TACROLIMUS [Suspect]
     Active Substance: TACROLIMUS
     Indication: Immunosuppressant drug therapy
     Dosage: UNK, (PLUS 100 FOLLOWING ASCT)
     Route: 065
  21. TACROLIMUS [Suspect]
     Active Substance: TACROLIMUS
     Indication: Graft versus host disease
  22. VALGANCICLOVIR [Suspect]
     Active Substance: VALGANCICLOVIR
     Indication: Cytomegalovirus infection reactivation
     Dosage: 900 MILLIGRAM, TWO TIMES A DAY
     Route: 065

REACTIONS (19)
  - Cytomegalovirus infection [Fatal]
  - Pancytopenia [Fatal]
  - Infection [Fatal]
  - Cytomegalovirus infection reactivation [Fatal]
  - Graft versus host disease [Fatal]
  - Diarrhoea [Fatal]
  - Pneumonia [Fatal]
  - Dry skin [Fatal]
  - Rash [Fatal]
  - Gastrointestinal disorder [Fatal]
  - Weight decreased [Fatal]
  - Skin exfoliation [Fatal]
  - Asthenia [Fatal]
  - Decreased appetite [Fatal]
  - General physical condition abnormal [Fatal]
  - Appetite disorder [Fatal]
  - Drug ineffective [Fatal]
  - Off label use [Fatal]
  - Therapeutic product effect incomplete [Not Recovered/Not Resolved]
